FAERS Safety Report 6812310-9 (Version None)
Quarter: 2010Q3

REPORT INFORMATION
  Report Type: 
  Country: None (occurrence: None)
  Receive Date: 20100701
  Receipt Date: 20100622
  Transmission Date: 20110219
  Serious: Yes (Other)
  Sender: FDA-Public Use
  Company Number: CH-ASTRAZENECA-2010SE29638

PATIENT
  Age: 0 Year
  Sex: Female
  Weight: 2.5 kg

DRUGS (4)
  1. NEXIUM [Suspect]
     Route: 064
     Dates: start: 20090101
  2. TRAMAL [Suspect]
     Route: 064
     Dates: start: 20090101
  3. LORAZEPAM [Suspect]
     Route: 064
     Dates: start: 20090326, end: 20090401
  4. NOVALGINE [Suspect]
     Route: 064
     Dates: start: 20090101, end: 20090401

REACTIONS (3)
  - DRUG WITHDRAWAL SYNDROME NEONATAL [None]
  - NEONATAL RESPIRATORY DISTRESS SYNDROME [None]
  - PREMATURE BABY [None]
